FAERS Safety Report 4883821-0 (Version None)
Quarter: 2006Q1

REPORT INFORMATION
  Report Type: 
  Country: None (occurrence: None)
  Receive Date: 20060113
  Receipt Date: 20060103
  Transmission Date: 20060701
  Serious: Yes (Life-Threatening, Hospitalization)
  Sender: FDA-Public Use
  Company Number: COM06-02

PATIENT
  Age: 82 Year
  Sex: Male
  Weight: 54.8852 kg

DRUGS (1)
  1. TRAMADOL 50 MG [Suspect]
     Indication: PAIN
     Dosage: 1 DOSE TID
     Route: 048

REACTIONS (3)
  - DIZZINESS [None]
  - DYSPNOEA [None]
  - LOSS OF CONSCIOUSNESS [None]
